FAERS Safety Report 4276922-1 (Version None)
Quarter: 2004Q1

REPORT INFORMATION
  Report Type: 
  Country: None (occurrence: None)
  Receive Date: 20040120
  Receipt Date: 20040106
  Transmission Date: 20041129
  Serious: Yes (Hospitalization)
  Sender: FDA-Public Use
  Company Number: 04P-163-0247016-00

PATIENT
  Sex: Female

DRUGS (6)
  1. KALETRA [Suspect]
     Indication: HIV INFECTION
     Dosage: PER ORAL
     Route: 048
     Dates: start: 20030701
  2. VORICONAZOLE [Suspect]
     Indication: ASPERGILLOSIS
     Dates: start: 20040101, end: 20040101
  3. VORICONAZOLE [Suspect]
     Indication: ASPERGILLOSIS
     Dates: start: 20040101
  4. ZIDOVUDINE W/LAMIVUDINE [Concomitant]
  5. DAPSONE [Concomitant]
  6. AZITHROMYCIN [Concomitant]

REACTIONS (3)
  - ASPERGILLOSIS [None]
  - DRUG INTERACTION [None]
  - HALLUCINATION [None]
